FAERS Safety Report 4439592-5 (Version None)
Quarter: 2004Q3

REPORT INFORMATION
  Report Type: 
  Country: None (occurrence: None)
  Receive Date: 20040830
  Receipt Date: 20040818
  Transmission Date: 20050211
  Serious: Yes (Hospitalization)
  Sender: FDA-Public Use
  Company Number: 2004US-00355

PATIENT
  Age: 53 Year
  Sex: Female

DRUGS (3)
  1. CEPHALEXIN [Suspect]
     Indication: FURUNCLE
     Dosage: 500 MG, QID, ORAL
     Route: 048
     Dates: start: 20040802, end: 20040812
  2. LIPITOR [Concomitant]
  3. SYNTHROID [Concomitant]

REACTIONS (3)
  - FATIGUE [None]
  - HYPERTENSION [None]
  - PALPITATIONS [None]
